FAERS Safety Report 20923270 (Version 1)
Quarter: 2022Q2

REPORT INFORMATION
  Report Type: Other
  Country: US (occurrence: None)
  Receive Date: 20220607
  Receipt Date: 20220607
  Transmission Date: 20220721
  Serious: Yes (Other)
  Sender: FDA-Public Use
  Company Number: US-ROCHE-2991161

PATIENT
  Sex: Male

DRUGS (9)
  1. XELODA [Suspect]
     Active Substance: CAPECITABINE
     Indication: Extramammary Paget^s disease
     Route: 048
  2. CARBOPLATIN [Concomitant]
     Active Substance: CARBOPLATIN
  3. DOCETAXEL [Concomitant]
     Active Substance: DOCETAXEL
  4. LUPRON [Concomitant]
     Active Substance: LEUPROLIDE ACETATE
  5. CASODEX [Concomitant]
     Active Substance: BICALUTAMIDE
  6. ZYTIGA [Concomitant]
     Active Substance: ABIRATERONE ACETATE
  7. PREDNISONE [Concomitant]
     Active Substance: PREDNISONE
  8. TYKERB [Concomitant]
     Active Substance: LAPATINIB DITOSYLATE
  9. TAMOXIFEN [Concomitant]
     Active Substance: TAMOXIFEN

REACTIONS (2)
  - Gastrointestinal haemorrhage [Unknown]
  - Off label use [Unknown]
